FAERS Safety Report 4602849-9 (Version None)
Quarter: 2005Q1

REPORT INFORMATION
  Report Type: 
  Country: None (occurrence: None)
  Receive Date: 20050307
  Receipt Date: 20050224
  Transmission Date: 20050727
  Serious: Yes (Other)
  Sender: FDA-Public Use
  Company Number: 200510059BCA

PATIENT
  Age: 49 Year
  Sex: Female

DRUGS (4)
  1. AVELOX [Suspect]
     Indication: BRONCHITIS
     Dosage: 400 MG, TOTAL DAILY, ORAL
     Route: 048
     Dates: start: 20050127, end: 20050201
  2. MAVIK [Concomitant]
  3. COACTIFED [Concomitant]
  4. ILLEGIBLE [Concomitant]

REACTIONS (2)
  - CARDIAC FLUTTER [None]
  - TREMOR [None]
